FAERS Safety Report 10009664 (Version 2)
Quarter: 2014Q1

REPORT INFORMATION
  Report Type: Spontaneous
  Country: US (occurrence: US)
  Receive Date: 20140312
  Receipt Date: 20140312
  Transmission Date: 20141002
  Serious: Yes (Other)
  Sender: FDA-Public Use
  Company Number: US-INCYTE CORPORATION-2012IN002172

PATIENT
  Age: 76 Year
  Sex: Female
  Weight: 85.5 kg

DRUGS (8)
  1. JAKAFI [Suspect]
     Indication: MYELOFIBROSIS
     Dosage: 15 MG, BID
     Route: 048
     Dates: start: 20120920, end: 20121016
  2. INSULIN [Concomitant]
     Dosage: UNK
  3. ALLOPURINOL [Concomitant]
     Dosage: 100 MG, BID
     Route: 048
  4. ATENOLOL [Concomitant]
     Dosage: 25 MG, BID
     Route: 048
  5. LEVOTHYROXINE [Concomitant]
     Dosage: 112 MCG, QD
     Route: 048
  6. FUROSEMIDE [Concomitant]
     Dosage: 200 MG, QD
     Route: 048
  7. METFORMIN [Concomitant]
     Dosage: 250 MG, BID
     Route: 048
  8. LISINOPRIL [Concomitant]
     Dosage: 40 MG, QD
     Route: 048

REACTIONS (3)
  - Platelet count decreased [Recovering/Resolving]
  - Anaemia [Recovering/Resolving]
  - Fatigue [Recovering/Resolving]
